FAERS Safety Report 7109764-X (Version None)
Quarter: 2010Q4

REPORT INFORMATION
  Report Type: 
  Country: None (occurrence: None)
  Receive Date: 20101118
  Receipt Date: 20101104
  Transmission Date: 20110411
  Serious: Yes (Other)
  Sender: FDA-Public Use
  Company Number: DE-JNJFOC-20101105337

PATIENT
  Sex: Male
  Weight: 85 kg

DRUGS (2)
  1. PALEXIA RETARD [Suspect]
     Route: 065
     Dates: start: 20101029, end: 20101102
  2. PALEXIA RETARD [Suspect]
     Indication: PAIN
     Route: 065
     Dates: start: 20101029, end: 20101102

REACTIONS (3)
  - ABDOMINAL PAIN UPPER [None]
  - NAUSEA [None]
  - RESPIRATORY DISORDER [None]
